FAERS Safety Report 9298571 (Version 1)
Quarter: 2013Q2

REPORT INFORMATION
  Report Type: Report from Study
  Country: DE (occurrence: DE)
  Receive Date: 20130520
  Receipt Date: 20130520
  Transmission Date: 20140414
  Serious: Yes (Death)
  Sender: FDA-Public Use
  Company Number: DE-ROCHE-GNE272106

PATIENT
  Sex: 0

DRUGS (4)
  1. ALTEPLASE [Suspect]
     Indication: ACUTE MYOCARDIAL INFARCTION
     Dosage: 50 MG, UNK
     Route: 065
  2. ALTEPLASE [Suspect]
     Dosage: 10 UG/KG, UNK
     Route: 040
  3. TIROFIBAN [Suspect]
     Indication: ACUTE MYOCARDIAL INFARCTION
     Dosage: 10 UGKGMN, UNK
     Route: 040
  4. TIROFIBAN [Suspect]
     Dosage: 0.15 UGKGMN, UNK
     Route: 042

REACTIONS (1)
  - Death [Fatal]
